FAERS Safety Report 20904584 (Version 6)
Quarter: 2024Q2

REPORT INFORMATION
  Report Type: Other
  Country: DE (occurrence: None)
  Receive Date: 20220602
  Receipt Date: 20240514
  Transmission Date: 20240715
  Serious: Yes (Hospitalization, Other)
  Sender: FDA-Public Use
  Company Number: DE-ROCHE-2839327

PATIENT
  Age: 42 Year
  Sex: Female

DRUGS (2)
  1. OCREVUS [Suspect]
     Active Substance: OCRELIZUMAB
     Indication: Relapsing-remitting multiple sclerosis
     Route: 042
     Dates: start: 20180702
  2. OCREVUS [Suspect]
     Active Substance: OCRELIZUMAB
     Dosage: SUBSEQUENT DOSE 600 MG 1 IN 175 DAYS
     Route: 042
     Dates: start: 20180702

REACTIONS (15)
  - COVID-19 [Recovered/Resolved]
  - Menstrual disorder [Recovered/Resolved]
  - Cardiovascular disorder [Recovered/Resolved]
  - Fall [Unknown]
  - Cystitis [Not Recovered/Not Resolved]
  - Fatigue [Recovering/Resolving]
  - Neurodermatitis [Recovered/Resolved]
  - Muscle spasms [Recovered/Resolved]
  - Posture abnormal [Recovered/Resolved]
  - Gait disturbance [Recovered/Resolved]
  - Breast pain [Recovered/Resolved]
  - C-reactive protein increased [Recovered/Resolved]
  - Relapsing-remitting multiple sclerosis [Not Recovered/Not Resolved]
  - Back pain [Not Recovered/Not Resolved]
  - Pain in extremity [Not Recovered/Not Resolved]

NARRATIVE: CASE EVENT DATE: 20210526
